FAERS Safety Report 8955924 (Version 1)
Quarter: 2012Q4

REPORT INFORMATION
  Report Type: 
  Country: US (occurrence: US)
  Receive Date: 20121210
  Receipt Date: 20121210
  Transmission Date: 20130627
  Serious: Yes (Other)
  Sender: FDA-Public Use
  Company Number: US-JNJFOC-20121202381

PATIENT
  Age: 24 Month
  Sex: Female
  Weight: 13.61 kg

DRUGS (1)
  1. BENGAY ULTRA STRENGTH [Suspect]
     Indication: ACCIDENTAL EXPOSURE TO PRODUCT
     Route: 047
     Dates: start: 20121130, end: 20121130

REACTIONS (3)
  - Accidental exposure to product [Unknown]
  - Ocular hyperaemia [Recovering/Resolving]
  - Eye swelling [Not Recovered/Not Resolved]
